FAERS Safety Report 23395085 (Version 1)
Quarter: 2024Q1

REPORT INFORMATION
  Report Type: Spontaneous
  Country: CN (occurrence: None)
  Receive Date: 20240112
  Receipt Date: 20240112
  Transmission Date: 20240410
  Serious: Yes (Hospitalization, Other)
  Sender: FDA-Public Use
  Company Number: 2023A279372

PATIENT
  Age: 50 Year
  Sex: Male

DRUGS (4)
  1. IMFINZI [Suspect]
     Active Substance: DURVALUMAB
     Indication: Lung neoplasm malignant
     Dosage: DAILY DOSE: THE REPORTER STATED THAT THE PATIENT USED THREE VIALS OF IMFINZI EACH TIME
     Route: 042
  2. CEFIXIME [Concomitant]
     Active Substance: CEFIXIME
  3. OXACIN [Concomitant]
  4. UNSPECIFIED INGREDIENT [Concomitant]
     Active Substance: UNSPECIFIED INGREDIENT

REACTIONS (4)
  - Radiation pneumonitis [Recovering/Resolving]
  - Pneumonia [Unknown]
  - Influenza [Unknown]
  - Nasopharyngitis [Unknown]
